FAERS Safety Report 4566037-7 (Version None)
Quarter: 2005Q1

REPORT INFORMATION
  Report Type: 
  Country: None (occurrence: None)
  Receive Date: 20050131
  Receipt Date: 20041228
  Transmission Date: 20050727
  Serious: Yes (Life-Threatening, Hospitalization)
  Sender: FDA-Public Use
  Company Number: US-MERCK-0412USA03053

PATIENT
  Age: 64 Year
  Sex: Female

DRUGS (6)
  1. VIOXX [Suspect]
     Indication: TENDONITIS
     Route: 048
     Dates: start: 20040401, end: 20040930
  2. PREMARIN [Concomitant]
     Route: 065
  3. ATENOLOL [Concomitant]
     Indication: CLUSTER HEADACHE
     Route: 065
  4. ELAVIL [Concomitant]
     Indication: CLUSTER HEADACHE
     Route: 065
  5. ACIPHEX [Concomitant]
     Indication: GASTROOESOPHAGEAL REFLUX DISEASE
     Route: 065
  6. ACIPHEX [Concomitant]
     Indication: HIATUS HERNIA
     Route: 065

REACTIONS (3)
  - ADVERSE DRUG REACTION [None]
  - DRUG INEFFECTIVE [None]
  - MYOCARDIAL INFARCTION [None]
